FAERS Safety Report 13121604 (Version 1)
Quarter: 2017Q1

REPORT INFORMATION
  Report Type: Spontaneous
  Country: US (occurrence: US)
  Receive Date: 20170115
  Receipt Date: 20170115
  Transmission Date: 20170428
  Serious: No
  Sender: FDA-Public Use
  Company Number: None

PATIENT
  Age: 60 Year
  Sex: Female
  Weight: 56.7 kg

DRUGS (4)
  1. CLINDAMYCIN. [Suspect]
     Active Substance: CLINDAMYCIN
     Indication: CELLULITIS
     Dates: start: 20161128, end: 20161202
  2. NATURE-THROID [Concomitant]
     Active Substance: THYROID, PORCINE
  3. VANCOMYCIN [Concomitant]
     Active Substance: VANCOMYCIN
  4. PHILIPS COLORECTAL HEALTH (PROBIOTIC) [Concomitant]

REACTIONS (2)
  - Clostridium difficile infection [None]
  - Weight decreased [None]

NARRATIVE: CASE EVENT DATE: 20161130
